FAERS Safety Report 18331071 (Version 2)
Quarter: 2020Q4

REPORT INFORMATION
  Report Type: Spontaneous
  Country: IT (occurrence: IT)
  Receive Date: 20200930
  Receipt Date: 20201013
  Transmission Date: 20210113
  Serious: Yes (Hospitalization, Other)
  Sender: FDA-Public Use
  Company Number: IT-VERTEX PHARMACEUTICALS-2020-019031

PATIENT
  Age: 41 Year
  Sex: Female
  Weight: 44 kg

DRUGS (1)
  1. ORKAMBI [Suspect]
     Active Substance: IVACAFTOR\LUMACAFTOR
     Indication: CYSTIC FIBROSIS
     Dosage: 200/125 MG
     Route: 048
     Dates: start: 2017, end: 2020

REACTIONS (6)
  - Respiratory failure [Unknown]
  - Respiratory distress [Recovering/Resolving]
  - Burkholderia cepacia complex sepsis [Unknown]
  - Forced expiratory volume abnormal [Unknown]
  - Gait disturbance [Unknown]
  - Bronchial obstruction [Recovering/Resolving]

NARRATIVE: CASE EVENT DATE: 20200619
